FAERS Safety Report 8187961 (Version 2)
Quarter: 2013Q4

REPORT INFORMATION
  Report Type: Spontaneous
  Country: US (occurrence: US)
  Receive Date: 20111018
  Receipt Date: 20131217
  Transmission Date: 20140711
  Serious: No
  Sender: FDA-Public Use
  Company Number: US-ASTRAZENECA-2011SE01765

PATIENT
  Age: 67 Year
  Sex: Female
  Weight: 61.2 kg

DRUGS (12)
  1. SYMBICORT PMDI [Suspect]
     Indication: ASTHMA
     Dosage: 320MCG BID
     Route: 055
  2. SYMBICORT PMDI [Suspect]
     Indication: CHRONIC OBSTRUCTIVE PULMONARY DISEASE
     Dosage: 320MCG BID
     Route: 055
  3. SYMBICORT PMDI [Suspect]
     Indication: ASTHMA
     Dosage: 160/4.5MCG , 2 PUFFS BID
     Route: 055
  4. SYMBICORT PMDI [Suspect]
     Indication: CHRONIC OBSTRUCTIVE PULMONARY DISEASE
     Dosage: 160/4.5MCG , 2 PUFFS BID
     Route: 055
  5. SYMBICORT PMDI [Suspect]
     Indication: ASTHMA
     Dosage: AT NIGHT
     Route: 055
  6. SYMBICORT PMDI [Suspect]
     Indication: CHRONIC OBSTRUCTIVE PULMONARY DISEASE
     Dosage: AT NIGHT
     Route: 055
  7. LISINOPRIL [Suspect]
     Indication: BLOOD PRESSURE ABNORMAL
     Route: 048
  8. SPIRIVA [Suspect]
     Dosage: EVERY OTHER DAY
     Route: 065
  9. VENTOLIN [Concomitant]
     Indication: INHALATION THERAPY
     Dosage: NR PRN
  10. LORAZEPAM [Concomitant]
     Indication: ANXIETY
  11. BACK AND BODY (BAYER) [Concomitant]
     Indication: BACK DISORDER
  12. OTC ALLERGY [Concomitant]
     Indication: HYPERSENSITIVITY

REACTIONS (3)
  - Dyspnoea [Unknown]
  - Weight increased [Unknown]
  - Intentional drug misuse [Unknown]
